FAERS Safety Report 7354130-5 (Version None)
Quarter: 2011Q1

REPORT INFORMATION
  Report Type: 
  Country: None (occurrence: None)
  Receive Date: 20110315
  Receipt Date: 20110303
  Transmission Date: 20110831
  Serious: Yes (Hospitalization, Other)
  Sender: FDA-Public Use
  Company Number: FR-BRISTOL-MYERS SQUIBB COMPANY-15591969

PATIENT
  Age: 81 Year
  Sex: Female

DRUGS (9)
  1. ZECLAR [Suspect]
  2. SPASFON [Concomitant]
     Indication: PAIN
     Dosage: 1 DF = 1 INTAKE
     Route: 048
     Dates: end: 20100422
  3. INDAPAMIDE [Concomitant]
     Indication: HYPERTENSION
     Dosage: 1 MODIFIED-RELEASED FILM-COATED TABLET
     Route: 048
     Dates: end: 20100422
  4. LEVOTHYROX [Interacting]
     Indication: HYPOTHYROIDISM
     Dosage: ONE TABS
     Route: 048
  5. EUTHYRAL [Interacting]
     Indication: HYPOTHYROIDISM
     Route: 048
  6. EXFORGE [Concomitant]
     Indication: HYPERTENSION
     Dosage: 1 DF = 1 INTAKE
     Route: 048
     Dates: end: 20100422
  7. COUMADIN [Interacting]
     Indication: VENOUS THROMBOSIS
     Route: 048
     Dates: end: 20100401
  8. TRIFLUCAN [Interacting]
     Indication: FUNGAL INFECTION
     Dosage: 1 DF = 200MG/5ML:TRIFLUCAN 200MG/5ML POWDER FOR ORAL SUSPENSION.
     Route: 048
     Dates: start: 20100417
  9. AUGMENTIN '125' [Suspect]

REACTIONS (8)
  - INTERNATIONAL NORMALISED RATIO INCREASED [None]
  - DIARRHOEA [None]
  - CHRONIC MYELOMONOCYTIC LEUKAEMIA [None]
  - FAECES DISCOLOURED [None]
  - DRUG INTERACTION [None]
  - OVERDOSE [None]
  - FUNGAL INFECTION [None]
  - COUGH [None]
